FAERS Safety Report 6669081-9 (Version None)
Quarter: 2010Q2

REPORT INFORMATION
  Report Type: 
  Country: None (occurrence: None)
  Receive Date: 20100402
  Receipt Date: 20100321
  Transmission Date: 20101027
  Serious: Yes (Other)
  Sender: FDA-Public Use
  Company Number: GB-DEXPHARM-20100365

PATIENT
  Age: 8 Month
  Sex: Male

DRUGS (1)
  1. HYDREX ACTIVE SUBSTANCES:  CHLORHEXIDINE GLUCONATE [Suspect]
     Dosage: 1 DF DOSAGE FORM TOPICAL
     Route: 061
     Dates: start: 20100224, end: 20100224

REACTIONS (1)
  - CHEMICAL BURN OF SKIN [None]
